FAERS Safety Report 7234488-8 (Version None)
Quarter: 2011Q1

REPORT INFORMATION
  Report Type: 
  Country: None (occurrence: None)
  Receive Date: 20110119
  Receipt Date: 20110113
  Transmission Date: 20110831
  Serious: Yes (Disabling)
  Sender: FDA-Public Use
  Company Number: US-ELI_LILLY_AND_COMPANY-US201101003608

PATIENT
  Sex: Male

DRUGS (3)
  1. LANTUS [Concomitant]
     Dosage: UNK, 2/D
  2. HUMALOG [Suspect]
     Indication: TYPE 1 DIABETES MELLITUS
     Dosage: 7 U, EACH MORNING
  3. HUMALOG [Suspect]
     Dosage: 15 U, OTHER

REACTIONS (2)
  - VISUAL FIELD DEFECT [None]
  - VISUAL ACUITY REDUCED [None]
